FAERS Safety Report 10914617 (Version 1)
Quarter: 2015Q1

REPORT INFORMATION
  Report Type: Spontaneous
  Country: NO (occurrence: NO)
  Receive Date: 20150313
  Receipt Date: 20150313
  Transmission Date: 20150721
  Serious: Yes (Other)
  Sender: FDA-Public Use
  Company Number: PHHY2015NO027605

PATIENT
  Age: 55 Year
  Sex: Female

DRUGS (5)
  1. DULOXETINE [Interacting]
     Active Substance: DULOXETINE
     Indication: PAIN IN EXTREMITY
     Dosage: 60 MG, QD
     Route: 065
  2. TRAMADOL [Suspect]
     Active Substance: TRAMADOL
     Indication: PAIN IN EXTREMITY
     Dosage: 100 MG, QD
     Route: 065
  3. TRAMADOL [Interacting]
     Active Substance: TRAMADOL
     Dosage: 600 DF, QD
     Route: 065
  4. TRAMADOL [Interacting]
     Active Substance: TRAMADOL
     Dosage: 800 DF, QD
     Route: 065
  5. CIPROFLOXACIN. [Interacting]
     Active Substance: CIPROFLOXACIN
     Indication: URINARY TRACT INFECTION
     Route: 065

REACTIONS (14)
  - Hypertonia [Unknown]
  - Clonus [Unknown]
  - Pyrexia [Unknown]
  - Hypertension [Unknown]
  - Tremor [Unknown]
  - Incorrect dose administered [Unknown]
  - Serotonin syndrome [Unknown]
  - Confusional state [Unknown]
  - Drug interaction [Unknown]
  - Hyperhidrosis [Unknown]
  - Diarrhoea [Unknown]
  - Pain in extremity [Unknown]
  - Tachycardia [Unknown]
  - Anxiety [Unknown]
